FAERS Safety Report 6259757-X (Version None)
Quarter: 2009Q3

REPORT INFORMATION
  Report Type: 
  Country: None (occurrence: None)
  Receive Date: 20090701
  Receipt Date: 20090625
  Transmission Date: 20100115
  Serious: Yes (Other)
  Sender: FDA-Public Use
  Company Number: A0782907A

PATIENT
  Age: 61 Year
  Sex: Female
  Weight: 53.4791 kg

DRUGS (1)
  1. UREA PEROXIDE [Suspect]
     Dosage: AURAL
     Route: 001

REACTIONS (7)
  - ANXIETY [None]
  - DEAFNESS [None]
  - DEPRESSION [None]
  - NERVOUSNESS [None]
  - SOMNOLENCE [None]
  - TREATMENT NONCOMPLIANCE [None]
  - TYMPANIC MEMBRANE PERFORATION [None]
